FAERS Safety Report 25006886 (Version 2)
Quarter: 2025Q1

REPORT INFORMATION
  Report Type: Spontaneous
  Country: US (occurrence: US)
  Receive Date: 20250225
  Receipt Date: 20250307
  Transmission Date: 20250409
  Serious: No
  Sender: ABBVIE
  Company Number: US-ABBVIE-6144194

PATIENT
  Age: 25 Year

DRUGS (1)
  1. LILETTA [Suspect]
     Active Substance: LEVONORGESTREL
     Indication: Product used for unknown indication
     Route: 015
     Dates: start: 20250203

REACTIONS (3)
  - Device breakage [Unknown]
  - Device expulsion [Unknown]
  - Embedded device [Unknown]

NARRATIVE: CASE EVENT DATE: 20250218
